FAERS Safety Report 12206881 (Version 1)
Quarter: 2016Q1

REPORT INFORMATION
  Report Type: Spontaneous
  Country: US (occurrence: None)
  Receive Date: 20160323
  Receipt Date: 20160323
  Transmission Date: 20160526
  Serious: Yes (Other)
  Sender: FDA-Public Use
  Company Number: None

PATIENT
  Age: 55 Year
  Sex: Female

DRUGS (1)
  1. ORENCIA [Suspect]
     Active Substance: ABATACEPT
     Indication: ARTHRITIS
     Dosage: SUBCUTANEOUS 057 125 INJECTABLE WEEKLY
     Route: 058
     Dates: start: 20140609, end: 201506

REACTIONS (2)
  - Drug ineffective [None]
  - Neoplasm malignant [None]

NARRATIVE: CASE EVENT DATE: 20150609
